FAERS Safety Report 10013808 (Version 1)
Quarter: 2014Q1

REPORT INFORMATION
  Report Type: Spontaneous
  Country: JP (occurrence: JP)
  Receive Date: 20140316
  Receipt Date: 20140316
  Transmission Date: 20141002
  Serious: Yes (Death)
  Sender: FDA-Public Use
  Company Number: JP-B.I. PHARMACEUTICALS,INC./RIDGEFIELD-2014-BI-11384YA

PATIENT
  Age: 82 Year
  Sex: Male

DRUGS (4)
  1. HARNAL D (TAMSULOSIN HYDROCHLORIDE) [Suspect]
     Indication: BENIGN PROSTATIC HYPERPLASIA
     Dosage: 0.1 MG
     Route: 048
  2. CELECOX [Suspect]
     Indication: SPONDYLOLISTHESIS
     Dosage: 200 MG
     Route: 048
  3. MYONAL /00287502/ (EPIRIZOLE HYDROCHLORIDE) [Concomitant]
     Route: 065
  4. MOHRUS L (KETOPROFEN) [Concomitant]
     Route: 048

REACTIONS (1)
  - Acute myocardial infarction [Fatal]
